FAERS Safety Report 4637629-1 (Version None)
Quarter: 2005Q2

REPORT INFORMATION
  Report Type: 
  Country: None (occurrence: None)
  Receive Date: 20050418
  Receipt Date: 20050308
  Transmission Date: 20051028
  Serious: Yes (Other)
  Sender: FDA-Public Use
  Company Number: US-GLAXOSMITHKLINE-A0548849A

PATIENT
  Age: 80 Year
  Sex: Male
  Weight: 75 kg

DRUGS (8)
  1. AVANDAMET [Suspect]
     Indication: DIABETES MELLITUS NON-INSULIN-DEPENDENT
     Dosage: 1TAB TWICE PER DAY
     Route: 048
  2. AVANDIA [Suspect]
     Indication: DIABETES MELLITUS NON-INSULIN-DEPENDENT
     Route: 048
  3. METFORMIN HCL [Suspect]
     Indication: DIABETES MELLITUS NON-INSULIN-DEPENDENT
     Route: 048
  4. ZOLOFT [Concomitant]
  5. GLIPIZIDE [Concomitant]
  6. L-THYROXINE [Concomitant]
  7. LIPITOR [Concomitant]
  8. FOLIC ACID [Concomitant]

REACTIONS (4)
  - DIABETES MELLITUS INADEQUATE CONTROL [None]
  - HYPERGLYCAEMIA [None]
  - MEDICATION ERROR [None]
  - PHARMACEUTICAL PRODUCT COMPLAINT [None]
